FAERS Safety Report 17527275 (Version 1)
Quarter: 2020Q1

REPORT INFORMATION
  Report Type: Spontaneous
  Country: US (occurrence: US)
  Receive Date: 20200311
  Receipt Date: 20200311
  Transmission Date: 20200409
  Serious: No
  Sender: FDA-Public Use
  Company Number: US-PFIZER INC-2020076723

PATIENT
  Age: 54 Year
  Sex: Female

DRUGS (1)
  1. PREMARIN [Suspect]
     Active Substance: ESTROGENS, CONJUGATED
     Indication: ATROPHIC VULVOVAGINITIS
     Dosage: UNK , 1X/DAY (1 APPLICATION TO VAGINA AT BEDTIME)
     Route: 067

REACTIONS (2)
  - Off label use [Unknown]
  - Vulvovaginal burning sensation [Recovered/Resolved]
